FAERS Safety Report 7469945-2 (Version None)
Quarter: 2011Q2

REPORT INFORMATION
  Report Type: 
  Country: None (occurrence: None)
  Receive Date: 20110429
  Receipt Date: 20110415
  Transmission Date: 20111010
  Serious: Yes (Other)
  Sender: FDA-Public Use
  Company Number: 2011-1123

PATIENT

DRUGS (1)
  1. DYSPORT [Suspect]
     Indication: MUSCLE SPASTICITY
     Dosage: (SINGLE CYCLE),INTRAMUSCULAR
     Route: 030

REACTIONS (11)
  - NECK PAIN [None]
  - EYELID PTOSIS [None]
  - SPEECH DISORDER [None]
  - VISUAL ACUITY REDUCED [None]
  - HEADACHE [None]
  - DYSPHONIA [None]
  - DYSPNOEA [None]
  - VISION BLURRED [None]
  - ASTHENIA [None]
  - DIPLOPIA [None]
  - DRY MOUTH [None]
